FAERS Safety Report 4962362-6 (Version None)
Quarter: 2006Q2

REPORT INFORMATION
  Report Type: 
  Country: None (occurrence: None)
  Receive Date: 20060404
  Receipt Date: 20060324
  Transmission Date: 20061013
  Serious: Yes (Hospitalization)
  Sender: FDA-Public Use
  Company Number: GB-BRISTOL-MYERS SQUIBB COMPANY-13328943

PATIENT
  Sex: Female

DRUGS (1)
  1. TREXAN (ORION) [Suspect]
     Indication: ILL-DEFINED DISORDER

REACTIONS (1)
  - MUSCULOSKELETAL DISORDER [None]
